FAERS Safety Report 6212073-4 (Version None)
Quarter: 2009Q2

REPORT INFORMATION
  Report Type: 
  Country: None (occurrence: None)
  Receive Date: 20090602
  Receipt Date: 20090529
  Transmission Date: 20091009
  Serious: Yes (Death)
  Sender: FDA-Public Use
  Company Number: JP-ABBOTT-09P-087-0570148-00

PATIENT
  Sex: Male
  Weight: 88 kg

DRUGS (4)
  1. NORVIR [Suspect]
     Indication: HIV INFECTION
     Route: 048
     Dates: start: 20061213, end: 20080503
  2. ATAZANAVIR SULFATE [Suspect]
     Indication: HIV INFECTION
     Route: 048
     Dates: start: 20061213, end: 20080503
  3. EMTRICITABINE W/TENOFOVIR [Suspect]
     Indication: HIV INFECTION
     Route: 048
     Dates: start: 20061213, end: 20080503
  4. RURIOCTOCOG  ALFA (GENETICAL RECOMBINATION) [Concomitant]
     Indication: HAEMOPHILIA
     Dosage: 1000 UNIT 0-5 TIMES A MONTH
     Route: 042
     Dates: start: 20061213, end: 20080503

REACTIONS (1)
  - INTRA-ABDOMINAL HAEMORRHAGE [None]
